FAERS Safety Report 17675142 (Version 1)
Quarter: 2020Q2

REPORT INFORMATION
  Report Type: Spontaneous
  Country: US (occurrence: US)
  Receive Date: 20200415
  Receipt Date: 20200415
  Transmission Date: 20200714
  Serious: No
  Sender: FDA-Public Use
  Company Number: None

PATIENT
  Age: 87 Year
  Weight: 80.1 kg

DRUGS (1)
  1. RITUXAN [Suspect]
     Active Substance: RITUXIMAB
     Indication: LYMPHOMA
     Dosage: ?          OTHER FREQUENCY:WEEKLY;?
     Route: 041
     Dates: start: 20200221

REACTIONS (1)
  - Tremor [None]

NARRATIVE: CASE EVENT DATE: 20200306
